FAERS Safety Report 20298274 (Version 1)
Quarter: 2022Q1

REPORT INFORMATION
  Report Type: Spontaneous
  Country: BR (occurrence: BR)
  Receive Date: 20220105
  Receipt Date: 20220105
  Transmission Date: 20220424
  Serious: Yes (Other)
  Sender: FDA-Public Use
  Company Number: BR-AMGEN-BRASP2021208265

PATIENT

DRUGS (1)
  1. XGEVA [Suspect]
     Active Substance: DENOSUMAB
     Indication: Giant cell tumour of tendon sheath
     Dosage: 120 MILLIGRAM, QMO
     Route: 065

REACTIONS (1)
  - Bone giant cell tumour [Unknown]
